FAERS Safety Report 16081287 (Version 1)
Quarter: 2019Q1

REPORT INFORMATION
  Report Type: Spontaneous
  Country: IT (occurrence: IT)
  Receive Date: 20190316
  Receipt Date: 20190316
  Transmission Date: 20190418
  Serious: Yes (Hospitalization)
  Sender: FDA-Public Use
  Company Number: IT-ACCORD-112738

PATIENT
  Age: 80 Year
  Sex: Male

DRUGS (8)
  1. ACETYLSALICYLIC ACID [Concomitant]
     Active Substance: ASPIRIN
  2. CLOPIDOGREL [Suspect]
     Active Substance: CLOPIDOGREL BISULFATE
     Indication: PERIPHERAL ARTERIAL OCCLUSIVE DISEASE
     Route: 048
     Dates: start: 20180916, end: 20180928
  3. HALCION [Concomitant]
     Active Substance: TRIAZOLAM
  4. LEXOTAN [Concomitant]
     Active Substance: BROMAZEPAM
  5. HYDROCHLOROTHIAZIDE/VALSARTAN [Concomitant]
  6. ISOPTIN [Concomitant]
     Active Substance: VERAPAMIL HYDROCHLORIDE
  7. PARIET [Concomitant]
     Active Substance: RABEPRAZOLE SODIUM
  8. LOVINACOR [Concomitant]
     Route: 048

REACTIONS (3)
  - Leukopenia [Unknown]
  - Oral fungal infection [Unknown]
  - Pseudomonal sepsis [Unknown]

NARRATIVE: CASE EVENT DATE: 20180920
